FAERS Safety Report 4590188-4 (Version None)
Quarter: 2005Q1

REPORT INFORMATION
  Report Type: 
  Country: None (occurrence: None)
  Receive Date: 20050217
  Receipt Date: 20050203
  Transmission Date: 20050727
  Serious: Yes (Hospitalization, Other)
  Sender: FDA-Public Use
  Company Number: 182846

PATIENT
  Sex: Female
  Weight: 106.5953 kg

DRUGS (11)
  1. AVONEX [Suspect]
     Indication: MULTIPLE SCLEROSIS
     Dosage: SEE IMAGE
     Route: 030
     Dates: end: 20030101
  2. AVONEX [Suspect]
     Indication: MULTIPLE SCLEROSIS
     Dosage: SEE IMAGE
     Route: 030
     Dates: start: 19970401
  3. AVONEX [Suspect]
     Indication: MULTIPLE SCLEROSIS
     Dosage: 30 UG; QW; IM
     Route: 030
     Dates: start: 20030101
  4. XANAX [Concomitant]
  5. AMBIEN [Concomitant]
  6. SYNTHROID [Concomitant]
  7. MEDICATION (NOS) [Concomitant]
  8. CELEXA [Concomitant]
  9. LASIX [Concomitant]
  10. POTASSIUM CHLORIDE [Concomitant]
  11. PREVACID [Concomitant]

REACTIONS (17)
  - ASTHENIA [None]
  - ASTHMA [None]
  - CHRONIC OBSTRUCTIVE PULMONARY DISEASE [None]
  - CONDITION AGGRAVATED [None]
  - CONTUSION [None]
  - DEPRESSION [None]
  - DYSPEPSIA [None]
  - EMPHYSEMA [None]
  - FALL [None]
  - FATIGUE [None]
  - HEADACHE [None]
  - LOCALISED INFECTION [None]
  - MULTIPLE SCLEROSIS [None]
  - NASOPHARYNGITIS [None]
  - SLEEP APNOEA SYNDROME [None]
  - THROMBOSIS [None]
  - URINARY TRACT INFECTION [None]
